FAERS Safety Report 6251575-1 (Version None)
Quarter: 2009Q2

REPORT INFORMATION
  Report Type: 
  Country: None (occurrence: None)
  Receive Date: 20090630
  Receipt Date: 20090622
  Transmission Date: 20091009
  Serious: Yes (Hospitalization, Other)
  Sender: FDA-Public Use
  Company Number: DE-ELI_LILLY_AND_COMPANY-DE200906005184

PATIENT
  Age: 43 Year
  Sex: Male
  Weight: 85 kg

DRUGS (3)
  1. HUMALOG [Suspect]
     Dosage: 25 IU, DAILY (1/D)
     Dates: start: 20090522
  2. HUMALOG [Suspect]
     Dosage: 5 IU, 2/D
     Dates: start: 20090522
  3. HUMALOG [Suspect]
     Dosage: 7 IU, DAILY (1/D)
     Dates: start: 20090522

REACTIONS (4)
  - DRUG ADMINISTRATION ERROR [None]
  - DRUG DOSE OMISSION [None]
  - HYPOGLYCAEMIC COMA [None]
  - INFECTION [None]
